FAERS Safety Report 15151000 (Version 5)
Quarter: 2019Q1

REPORT INFORMATION
  Report Type: Spontaneous
  Country: US (occurrence: US)
  Receive Date: 20180716
  Receipt Date: 20190225
  Transmission Date: 20190417
  Serious: Yes (Other)
  Sender: FDA-Public Use
  Company Number: US-SA-2018SA183950

PATIENT
  Sex: Female

DRUGS (14)
  1. VITAMIN C [Concomitant]
     Active Substance: ASCORBIC ACID
  2. AUBAGIO [Suspect]
     Active Substance: TERIFLUNOMIDE
     Indication: MULTIPLE SCLEROSIS
     Dosage: 14 MG, QD
     Route: 048
     Dates: start: 2017
  3. NORVASC [Concomitant]
     Active Substance: AMLODIPINE BESYLATE
  4. IMITREX [Concomitant]
     Active Substance: SUMATRIPTAN SUCCINATE
  5. MIRALAX [Concomitant]
     Active Substance: POLYETHYLENE GLYCOL 3350
  6. MYRBETRIQ [Concomitant]
     Active Substance: MIRABEGRON
     Dosage: UNK, QD
  7. AMPYRA [Concomitant]
     Active Substance: DALFAMPRIDINE
  8. BACLOFEN. [Concomitant]
     Active Substance: BACLOFEN
  9. CLARITIN [Concomitant]
     Active Substance: LORATADINE
     Dosage: UNK, Q12H
  10. VITAMIN D [ERGOCALCIFEROL] [Concomitant]
     Active Substance: ERGOCALCIFEROL
  11. TOPAMAX [Concomitant]
     Active Substance: TOPIRAMATE
     Indication: MULTIPLE SCLEROSIS
  12. BELSOMRA [Concomitant]
     Active Substance: SUVOREXANT
     Dosage: UNK
  13. SYNTHROID [Concomitant]
     Active Substance: LEVOTHYROXINE SODIUM
  14. DALFAMPRIDINE. [Concomitant]
     Active Substance: DALFAMPRIDINE

REACTIONS (4)
  - Alopecia [Unknown]
  - Multiple sclerosis [Unknown]
  - Gait disturbance [Unknown]
  - Depression [Unknown]
